FAERS Safety Report 8430029-8 (Version None)
Quarter: 2012Q2

REPORT INFORMATION
  Report Type: 
  Country: None (occurrence: None)
  Receive Date: 20120612
  Receipt Date: 20120607
  Transmission Date: 20120825
  Serious: Yes (Hospitalization)
  Sender: FDA-Public Use
  Company Number: JP-ROCHE-1056911

PATIENT
  Age: 48 Year
  Sex: Male

DRUGS (8)
  1. RABEPRAZOLE SODIUM [Concomitant]
  2. NESPO [Concomitant]
  3. LUCENTIS [Suspect]
     Indication: AGE-RELATED MACULAR DEGENERATION
     Route: 050
     Dates: start: 20120310
  4. VIGAMOX [Concomitant]
     Dates: start: 20120301, end: 20120301
  5. SENNOSIDE [Concomitant]
  6. IRON SUCROSE [Concomitant]
  7. CALCIUM CARBONATE [Concomitant]
  8. ATELEC [Concomitant]

REACTIONS (1)
  - CEREBRAL INFARCTION [None]
